FAERS Safety Report 6652528-1 (Version None)
Quarter: 2010Q1

REPORT INFORMATION
  Report Type: 
  Country: None (occurrence: None)
  Receive Date: 20100325
  Receipt Date: 20100325
  Transmission Date: 20100710
  Serious: Yes (Hospitalization)
  Sender: FDA-Public Use
  Company Number: None

PATIENT
  Age: 62 Year
  Sex: Male
  Weight: 85.3 kg

DRUGS (2)
  1. PRAZOSIN HCL [Suspect]
     Indication: NIGHTMARE
     Dates: start: 20100203
  2. PRAZOSIN HCL [Suspect]
     Indication: POST-TRAUMATIC STRESS DISORDER
     Dates: start: 20100203

REACTIONS (2)
  - DIZZINESS [None]
  - SYNCOPE [None]
